FAERS Safety Report 17397561 (Version 2)
Quarter: 2020Q3

REPORT INFORMATION
  Report Type: Spontaneous
  Country: JP (occurrence: JP)
  Receive Date: 20200210
  Receipt Date: 20200902
  Transmission Date: 20201102
  Serious: Yes (Hospitalization, Other)
  Sender: FDA-Public Use
  Company Number: JP-009507513-2002JPN000829J

PATIENT
  Age: 54 Year
  Sex: Male

DRUGS (3)
  1. KEYTRUDA [Suspect]
     Active Substance: PEMBROLIZUMAB
     Indication: NON-SMALL CELL LUNG CANCER
     Dosage: 200 MILLIGRAM, Q3W
     Route: 041
     Dates: start: 20191030, end: 20191120
  2. CISPLATIN. [Concomitant]
     Active Substance: CISPLATIN
     Dosage: UNK
     Route: 065
  3. ALIMTA [Concomitant]
     Active Substance: PEMETREXED DISODIUM
     Dosage: UNK
     Route: 065

REACTIONS (3)
  - Rash [Recovered/Resolved]
  - Anaphylactic shock [Recovered/Resolved]
  - Infusion related reaction [Recovered/Resolved]

NARRATIVE: CASE EVENT DATE: 20191030
